FAERS Safety Report 22909753 (Version 9)
Quarter: 2025Q1

REPORT INFORMATION
  Report Type: Spontaneous
  Country: US (occurrence: US)
  Receive Date: 20230906
  Receipt Date: 20250204
  Transmission Date: 20250409
  Serious: Yes (Hospitalization)
  Sender: ROCHE
  Company Number: US-ROCHE-3416518

PATIENT
  Sex: Male

DRUGS (3)
  1. HEMLIBRA [Suspect]
     Active Substance: EMICIZUMAB-KXWH
     Indication: Factor VIII deficiency
     Dosage: STRENGTH: 150 MG/ML
     Route: 058
     Dates: start: 202306
  2. HEMLIBRA [Suspect]
     Active Substance: EMICIZUMAB-KXWH
     Dosage: STRENGTH: 105MG/ 0.7ML
     Route: 058
     Dates: start: 202306
  3. HEMLIBRA [Suspect]
     Active Substance: EMICIZUMAB-KXWH
     Dosage: STRENGTH: 150 MG/ML
     Route: 058
     Dates: start: 202302

REACTIONS (5)
  - Haemorrhage [Recovered/Resolved]
  - Fall [Unknown]
  - Haemorrhage [Unknown]
  - Injury [Unknown]
  - Haemarthrosis [Recovered/Resolved]
